FAERS Safety Report 23437379 (Version 3)
Quarter: 2024Q1

REPORT INFORMATION
  Report Type: Spontaneous
  Country: US (occurrence: US)
  Receive Date: 20240124
  Receipt Date: 20240223
  Transmission Date: 20240410
  Serious: No
  Sender: FDA-Public Use
  Company Number: US-PFIZER INC-202400002636

PATIENT
  Age: 12 Year
  Sex: Female
  Weight: 43.09 kg

DRUGS (1)
  1. GENOTROPIN [Suspect]
     Active Substance: SOMATROPIN
     Indication: Short stature
     Dosage: INJECTION ONCE A DAY, 6 DAYS OUT OF THE WEEK/1.6 MG DAILY

REACTIONS (2)
  - Product odour abnormal [Unknown]
  - Device leakage [Unknown]
